FAERS Safety Report 9869289 (Version 1)
Quarter: 2014Q1

REPORT INFORMATION
  Report Type: Report from Study
  Country: BE (occurrence: BE)
  Receive Date: 20140205
  Receipt Date: 20140205
  Transmission Date: 20141002
  Serious: Yes (Other)
  Sender: FDA-Public Use
  Company Number: BE-BAYER-2014-017916

PATIENT
  Age: 41 Year
  Sex: Male

DRUGS (1)
  1. BETAFERON [Suspect]
     Dosage: UNK
     Dates: start: 20080101, end: 20131001

REACTIONS (1)
  - Multiple sclerosis [None]
